FAERS Safety Report 10578937 (Version 2)
Quarter: 2014Q4

REPORT INFORMATION
  Report Type: Report from Study
  Country: AU (occurrence: AU)
  Receive Date: 20141112
  Receipt Date: 20141117
  Transmission Date: 20150529
  Serious: Yes (Other)
  Sender: FDA-Public Use
  Company Number: AU-SA-2014SA154378

PATIENT
  Sex: Male

DRUGS (4)
  1. LANTUS [Suspect]
     Active Substance: INSULIN GLARGINE
     Dosage: DOSE-  UNITS IN MORNING AND 4 UNITS IN EVENING
     Route: 065
  2. HUMALOG [Suspect]
     Active Substance: INSULIN LISPRO
     Route: 065
  3. CLIKSTAR [Concomitant]
     Active Substance: CLIKSTAR
  4. LANTUS [Suspect]
     Active Substance: INSULIN GLARGINE
     Route: 065

REACTIONS (3)
  - Loss of consciousness [Not Recovered/Not Resolved]
  - Drug administration error [Unknown]
  - Extra dose administered [Unknown]
